FAERS Safety Report 10438741 (Version 2)
Quarter: 2014Q3

REPORT INFORMATION
  Report Type: Report from Study
  Country: BR (occurrence: BR)
  Receive Date: 20140908
  Receipt Date: 20140922
  Transmission Date: 20150326
  Serious: Yes (Other)
  Sender: FDA-Public Use
  Company Number: PHHY2014BR115187

PATIENT
  Sex: Male

DRUGS (3)
  1. RITALIN LA [Suspect]
     Active Substance: METHYLPHENIDATE HYDROCHLORIDE
     Indication: ATTENTION DEFICIT/HYPERACTIVITY DISORDER
     Dosage: 1 DF (1 CAPSULE OF 20MG), QD (IN THE MORNING)
     Route: 048
     Dates: start: 201401
  2. CONCERTA [Suspect]
     Active Substance: METHYLPHENIDATE HYDROCHLORIDE
     Indication: ATTENTION DEFICIT/HYPERACTIVITY DISORDER
     Dosage: 1 DF (1 TABLET), DAILY
     Route: 048
     Dates: start: 201301, end: 201312
  3. RITALIN LA [Suspect]
     Active Substance: METHYLPHENIDATE HYDROCHLORIDE
     Dosage: 1 DF (1 CAPSULE OF 10MG), QD (IN THE AFTERNOON)
     Route: 048

REACTIONS (7)
  - Dizziness [Recovered/Resolved]
  - Varicella [Not Recovered/Not Resolved]
  - Memory impairment [Recovering/Resolving]
  - Disturbance in attention [Recovered/Resolved]
  - Headache [Not Recovered/Not Resolved]
  - Malaise [Recovering/Resolving]
  - Decreased appetite [Not Recovered/Not Resolved]
